FAERS Safety Report 9112290 (Version 1)
Quarter: 2013Q1

REPORT INFORMATION
  Report Type: Spontaneous
  Country: US (occurrence: US)
  Receive Date: 20130219
  Receipt Date: 20130219
  Transmission Date: 20140127
  Serious: No
  Sender: FDA-Public Use
  Company Number: US-BRISTOL-MYERS SQUIBB COMPANY-16701138

PATIENT
  Age: 46 Year
  Sex: Female
  Weight: 82.54 kg

DRUGS (5)
  1. ORENCIA [Suspect]
     Indication: RHEUMATOID ARTHRITIS
     Route: 042
     Dates: start: 20120619
  2. LEFLUNOMIDE [Concomitant]
  3. ACETYLSALICYLIC ACID [Concomitant]
  4. COREG [Concomitant]
  5. LANTUS [Concomitant]

REACTIONS (5)
  - Blood glucose increased [Unknown]
  - Fatigue [Unknown]
  - Headache [Unknown]
  - Urticaria [Unknown]
  - Hypertension [Unknown]
